FAERS Safety Report 9215732 (Version 1)
Quarter: 2013Q2

REPORT INFORMATION
  Report Type: Spontaneous
  Country: BR (occurrence: BR)
  Receive Date: 20130408
  Receipt Date: 20130408
  Transmission Date: 20140414
  Serious: Yes (Other)
  Sender: FDA-Public Use
  Company Number: BR-AMGEN-BRASP2013023463

PATIENT
  Age: 60 Year
  Sex: Male
  Weight: 46 kg

DRUGS (1)
  1. ENBREL [Suspect]
     Indication: PSORIATIC ARTHROPATHY
     Dosage: 50 MG, ONCE WEEKLY
     Route: 058
     Dates: start: 201209

REACTIONS (7)
  - Wound haemorrhage [Unknown]
  - Pain [Unknown]
  - Wound complication [Unknown]
  - Arthralgia [Unknown]
  - Skin ulcer [Unknown]
  - Impaired healing [Unknown]
  - Drug ineffective [Unknown]
